FAERS Safety Report 12659885 (Version 1)
Quarter: 2016Q3

REPORT INFORMATION
  Report Type: Report from Study
  Country: CA (occurrence: CA)
  Receive Date: 20160817
  Receipt Date: 20160817
  Transmission Date: 20161109
  Serious: Yes (Other)
  Sender: FDA-Public Use
  Company Number: CA-BAYER-2016-147350

PATIENT
  Age: 30 Year
  Sex: Female

DRUGS (1)
  1. MIRENA [Suspect]
     Active Substance: LEVONORGESTREL
     Indication: CONTRACEPTION
     Dosage: 20 MCG/24HR, CONT
     Route: 015
     Dates: start: 20160226, end: 2016

REACTIONS (6)
  - Cervical dysplasia [None]
  - Medical device discomfort [None]
  - Device expulsion [Recovered/Resolved]
  - Procedural pain [None]
  - Device difficult to use [None]
  - Device physical property issue [None]

NARRATIVE: CASE EVENT DATE: 2016
